FAERS Safety Report 19672364 (Version 2)
Quarter: 2021Q4

REPORT INFORMATION
  Report Type: Spontaneous
  Country: US (occurrence: US)
  Receive Date: 20210808
  Receipt Date: 20211123
  Transmission Date: 20220304
  Serious: No
  Sender: FDA-Public Use
  Company Number: US-GSKCCFUS-CASE-01127076_AE-66342

PATIENT
  Age: 79 Year
  Sex: Female

DRUGS (1)
  1. BREO ELLIPTA [Suspect]
     Active Substance: FLUTICASONE FUROATE\VILANTEROL TRIFENATATE
     Indication: Asthma
     Dosage: 200/25
     Route: 055
     Dates: start: 20210729

REACTIONS (3)
  - Hypertension [Recovered/Resolved]
  - Chills [Recovered/Resolved]
  - Headache [Recovered/Resolved]

NARRATIVE: CASE EVENT DATE: 20210802
